FAERS Safety Report 7045922-0 (Version None)
Quarter: 2010Q4

REPORT INFORMATION
  Report Type: 
  Country: None (occurrence: None)
  Receive Date: 20101014
  Receipt Date: 20101004
  Transmission Date: 20110411
  Serious: Yes (Other)
  Sender: FDA-Public Use
  Company Number: US-ELI_LILLY_AND_COMPANY-US201010001096

PATIENT
  Sex: Female

DRUGS (13)
  1. FORTEO [Suspect]
     Indication: OSTEOPOROSIS
     Dosage: 20 UG, DAILY (1/D)
  2. ASPIRIN [Concomitant]
     Dosage: 81 MG, UNK
  3. CENTRUM SILVER [Concomitant]
  4. LANOXIN [Concomitant]
     Dosage: 0.125 MG, DAILY (1/D)
  5. FUROSEMIDE [Concomitant]
     Dosage: 20 MG, DAILY (1/D)
  6. LISINOPRIL [Concomitant]
     Dosage: 20 MG, DAILY (1/D)
  7. TRILIPIX [Concomitant]
     Dosage: 135 MG, DAILY (1/D)
  8. FORTAMET [Concomitant]
     Dosage: 500 MG, 2/D
  9. GLIMEPIRIDE [Concomitant]
     Dosage: 4 MG, 2/D
  10. VYTORIN [Concomitant]
     Dosage: 20 MG, EACH EVENING
  11. CALCIUM + VITAMIN D [Concomitant]
     Dosage: 600 MG, 2/D
  12. GABAPENTIN [Concomitant]
     Dosage: 300 MG, 3/D
  13. LEVEMIR [Concomitant]
     Dosage: 50 U, 2/D

REACTIONS (2)
  - EXOSTOSIS [None]
  - NERVE COMPRESSION [None]
